FAERS Safety Report 4461661-4 (Version None)
Quarter: 2004Q3

REPORT INFORMATION
  Report Type: 
  Country: None (occurrence: None)
  Receive Date: 20040916
  Receipt Date: 20040901
  Transmission Date: 20050211
  Serious: Yes (Death, Life-Threatening)
  Sender: FDA-Public Use
  Company Number: 236611

PATIENT
  Age: 75 Year
  Sex: Female
  Weight: 47 kg

DRUGS (7)
  1. NOVOSEVEN [Suspect]
     Indication: ACQUIRED HAEMOPHILIA
     Dosage: SEE IMAGE, INTRAVENOUS
     Route: 042
     Dates: start: 20040413, end: 20040413
  2. NOVOSEVEN [Suspect]
     Indication: ACQUIRED HAEMOPHILIA
     Dosage: SEE IMAGE, INTRAVENOUS
     Route: 042
     Dates: start: 20040414, end: 20040414
  3. NOVOSEVEN [Suspect]
     Indication: ACQUIRED HAEMOPHILIA
     Dosage: SEE IMAGE, INTRAVENOUS
     Route: 042
     Dates: start: 20040416, end: 20040416
  4. ADONA (CARBAZOCHROME SODIUM SULFONATE) [Concomitant]
  5. TRANSAMIN (TRANEXAMIC ACID) [Concomitant]
  6. PREDNISOLONE [Concomitant]
  7. NEORAL [Concomitant]

REACTIONS (3)
  - HYPOTENSION [None]
  - INTRA-ABDOMINAL HAEMORRHAGE [None]
  - SHOCK HAEMORRHAGIC [None]
